FAERS Safety Report 4448678-0 (Version None)
Quarter: 2004Q3

REPORT INFORMATION
  Report Type: 
  Country: None (occurrence: None)
  Receive Date: 20040909
  Receipt Date: 20040825
  Transmission Date: 20050211
  Serious: Yes (Life-Threatening)
  Sender: FDA-Public Use
  Company Number: J200403668

PATIENT
  Age: 84 Year
  Sex: Female

DRUGS (1)
  1. (MYSLEE) ZOLPIDEM TARTRATE 5 MG [Suspect]
     Indication: INSOMNIA
     Dosage: 5 MG PO
     Route: 048
     Dates: start: 20040824, end: 20040824

REACTIONS (1)
  - RESPIRATORY DEPRESSION [None]
